FAERS Safety Report 6380292-2 (Version None)
Quarter: 2009Q3

REPORT INFORMATION
  Report Type: 
  Country: None (occurrence: None)
  Receive Date: 20090929
  Receipt Date: 20090918
  Transmission Date: 20100115
  Serious: Yes (Hospitalization)
  Sender: FDA-Public Use
  Company Number: US-AVENTIS-200913480US

PATIENT
  Age: 82 Year
  Sex: Female

DRUGS (3)
  1. LANTUS [Suspect]
     Route: 058
  2. LANTUS [Suspect]
     Route: 058
  3. NOVOLOG [Suspect]
     Dosage: DOSE: SLIDING SCALE

REACTIONS (3)
  - BLOOD GLUCOSE INCREASED [None]
  - HOSPITALISATION [None]
  - INJECTION SITE PAIN [None]
